FAERS Safety Report 15995543 (Version 1)
Quarter: 2019Q1

REPORT INFORMATION
  Report Type: Report from Study
  Country: CA (occurrence: CA)
  Receive Date: 20190222
  Receipt Date: 20190222
  Transmission Date: 20190418
  Serious: Yes (Other)
  Sender: FDA-Public Use
  Company Number: PHHY2017CA111935

PATIENT
  Age: 50 Year
  Sex: Female
  Weight: 130 kg

DRUGS (4)
  1. MORPHINE [Suspect]
     Active Substance: MORPHINE
     Indication: PRODUCT USED FOR UNKNOWN INDICATION
     Dosage: UNK
     Route: 065
  2. SOMATOSTATIN [Concomitant]
     Active Substance: SOMATOSTATIN
     Indication: PRODUCT USED FOR UNKNOWN INDICATION
     Route: 065
  3. SANDOSTATIN LAR DEPOT [Suspect]
     Active Substance: OCTREOTIDE ACETATE
     Indication: CARCINOID SYNDROME
     Dosage: 30 MG, Q4W
     Route: 030
     Dates: start: 20170629
  4. TELMISARTAN. [Suspect]
     Active Substance: TELMISARTAN
     Indication: PRODUCT USED FOR UNKNOWN INDICATION
     Dosage: 80 MG, UNK
     Route: 048

REACTIONS (32)
  - Injection site cyst [Unknown]
  - Productive cough [Unknown]
  - Nausea [Unknown]
  - Pyrexia [Unknown]
  - Anxiety [Unknown]
  - Wound [Unknown]
  - Feeling hot [Unknown]
  - Injection site paraesthesia [Unknown]
  - Administration site discharge [Unknown]
  - Injection site pain [Unknown]
  - Carcinoid tumour [Unknown]
  - Malignant neoplasm progression [Unknown]
  - Administration site induration [Unknown]
  - Influenza [Recovering/Resolving]
  - Cough [Unknown]
  - Weight increased [Unknown]
  - Hot flush [Unknown]
  - Hidradenitis [Unknown]
  - Breast cyst [Unknown]
  - Dizziness [Unknown]
  - Administration site haemorrhage [Unknown]
  - Injection site infection [Recovering/Resolving]
  - Tumour marker increased [Unknown]
  - Weight decreased [Unknown]
  - Nasopharyngitis [Unknown]
  - Dyspnoea [Unknown]
  - Fatigue [Unknown]
  - Administration site abscess [Unknown]
  - Blood pressure increased [Unknown]
  - Buttock injury [Unknown]
  - Pain [Unknown]
  - Administration site odour [Unknown]

NARRATIVE: CASE EVENT DATE: 20180208
